FAERS Safety Report 9943612 (Version 2)
Quarter: 2014Q1

REPORT INFORMATION
  Report Type: Report from Study
  Country: US (occurrence: US)
  Receive Date: 20140303
  Receipt Date: 20140303
  Transmission Date: 20141002
  Serious: Yes (Hospitalization)
  Sender: FDA-Public Use
  Company Number: US-ABBVIE-13P-163-1048056-00

PATIENT
  Age: 56 Year
  Sex: Female

DRUGS (5)
  1. HUMIRA [Suspect]
     Indication: CROHN^S DISEASE
     Dates: start: 201003, end: 20121212
  2. ACIPHEX [Concomitant]
     Indication: GASTROOESOPHAGEAL REFLUX DISEASE
  3. FENOFIBRATE [Concomitant]
     Indication: BLOOD CHOLESTEROL
  4. VITAMIN D NOS [Concomitant]
     Indication: VITAMIN D DECREASED
  5. CENTRUM [Concomitant]
     Indication: PRODUCT USED FOR UNKNOWN INDICATION

REACTIONS (4)
  - Sinusitis [Unknown]
  - Ear infection [Unknown]
  - Pneumonia [Recovered/Resolved]
  - Sinusitis [Unknown]
